FAERS Safety Report 9379622 (Version 3)
Quarter: 2013Q3

REPORT INFORMATION
  Report Type: Spontaneous
  Country: DE (occurrence: DE)
  Receive Date: 20130702
  Receipt Date: 20130826
  Transmission Date: 20140515
  Serious: Yes (Death, Hospitalization, Disabling)
  Sender: FDA-Public Use
  Company Number: PHHY2013DE039335

PATIENT
  Age: 79 Year
  Sex: Female
  Weight: 56 kg

DRUGS (5)
  1. AFINITOR [Suspect]
     Indication: BREAST CANCER METASTATIC
     Dosage: 10 MG, DAILY
     Route: 048
     Dates: start: 20130313, end: 20130409
  2. EXEMESTAN [Concomitant]
     Indication: BREAST CANCER METASTATIC
     Dosage: 25 MG, DAILY
     Route: 048
     Dates: start: 20130313, end: 20130409
  3. TARGIN [Concomitant]
     Indication: PAIN
     Dosage: 1 DF, BID
     Route: 048
  4. DEXAMETHASON//DEXAMETHASONE [Concomitant]
     Dosage: 4 MG, QD
  5. METOPROLOL [Concomitant]
     Indication: HYPERTENSION

REACTIONS (14)
  - Stomatitis [Fatal]
  - Joint swelling [Fatal]
  - Pneumonitis [Fatal]
  - Pyrexia [Fatal]
  - Dyspnoea [Fatal]
  - Cough [Fatal]
  - Chest discomfort [Fatal]
  - Fatigue [Fatal]
  - Breast cancer metastatic [Fatal]
  - Malignant neoplasm progression [Fatal]
  - Metastases to bone [Fatal]
  - Clubbing [Unknown]
  - Oedema peripheral [Unknown]
  - Arthralgia [Unknown]
